FAERS Safety Report 8386799-0 (Version None)
Quarter: 2012Q2

REPORT INFORMATION
  Report Type: 
  Country: None (occurrence: None)
  Receive Date: 20120523
  Receipt Date: 20120523
  Transmission Date: 20120825
  Serious: Yes (Hospitalization)
  Sender: FDA-Public Use
  Company Number: None

PATIENT
  Age: 18 Month
  Sex: Female

DRUGS (2)
  1. LITTLE TUMMIES STIMULANT LAXATIVE [Suspect]
  2. LITTLE TUMMIES STIMULANT LAXATIVE [Suspect]
     Dosage: 3 CC ONCE A DAY ORALLY
     Route: 048
     Dates: start: 20110801

REACTIONS (4)
  - GASTROINTESTINAL HAEMORRHAGE [None]
  - LIQUID PRODUCT PHYSICAL ISSUE [None]
  - PRODUCT QUALITY ISSUE [None]
  - PRODUCT TASTE ABNORMAL [None]
